FAERS Safety Report 23794523 (Version 1)
Quarter: 2024Q2

REPORT INFORMATION
  Report Type: Spontaneous
  Country: IT (occurrence: IT)
  Receive Date: 20240429
  Receipt Date: 20240429
  Transmission Date: 20240715
  Serious: Yes (Other)
  Sender: FDA-Public Use
  Company Number: IT-ELI_LILLY_AND_COMPANY-IT202404004444

PATIENT
  Age: 77 Year
  Sex: Female

DRUGS (2)
  1. PEMETREXED [Suspect]
     Active Substance: PEMETREXED
     Indication: Mesothelioma
     Dosage: UNK
     Route: 065
     Dates: start: 20220524, end: 20221006
  2. CISPLATIN [Concomitant]
     Active Substance: CISPLATIN
     Indication: Mesothelioma
     Dosage: UNK
     Route: 065
     Dates: start: 20220524, end: 20221006

REACTIONS (1)
  - Malignant neoplasm progression [Unknown]

NARRATIVE: CASE EVENT DATE: 20230601
